FAERS Safety Report 9172346 (Version 1)
Quarter: 2013Q1

REPORT INFORMATION
  Report Type: Spontaneous
  Country: VE (occurrence: VE)
  Receive Date: 20130319
  Receipt Date: 20130319
  Transmission Date: 20140127
  Serious: Yes (Other)
  Sender: FDA-Public Use
  Company Number: VE-ROCHE-1201871

PATIENT
  Age: 58 Year
  Sex: Female

DRUGS (2)
  1. XOLAIR [Suspect]
     Indication: ASTHMA
     Route: 058
     Dates: start: 2009, end: 20110101
  2. ASPIRIN [Concomitant]

REACTIONS (5)
  - Glaucoma [Not Recovered/Not Resolved]
  - Retinal detachment [Not Recovered/Not Resolved]
  - Conjunctival deposit [Recovering/Resolving]
  - Eye infection [Not Recovered/Not Resolved]
  - Eye movement disorder [Not Recovered/Not Resolved]
